FAERS Safety Report 6764024-1 (Version None)
Quarter: 2010Q2

REPORT INFORMATION
  Report Type: 
  Country: None (occurrence: None)
  Receive Date: 20100610
  Receipt Date: 20100316
  Transmission Date: 20101027
  Serious: No
  Sender: FDA-Public Use
  Company Number: US-ASTRAZENECA-2010SE11466

PATIENT
  Sex: Female

DRUGS (1)
  1. FASLODEX [Suspect]
     Route: 030
     Dates: start: 20090101

REACTIONS (5)
  - BLOOD PRESSURE ABNORMAL [None]
  - HEART RATE INCREASED [None]
  - HEART RATE IRREGULAR [None]
  - NERVOUSNESS [None]
  - TREMOR [None]
